FAERS Safety Report 20649159 (Version 1)
Quarter: 2022Q1

REPORT INFORMATION
  Report Type: Spontaneous
  Country: CA (occurrence: CA)
  Receive Date: 20220329
  Receipt Date: 20220329
  Transmission Date: 20220423
  Serious: Yes (Hospitalization, Other)
  Sender: FDA-Public Use
  Company Number: CA-BAUSCH-BL-2022-007379

PATIENT
  Age: 52 Year
  Sex: Male

DRUGS (12)
  1. LORAZEPAM [Suspect]
     Active Substance: LORAZEPAM
     Indication: Product used for unknown indication
     Dosage: MAXIMUM POSSIBLE INGESTION: 30 MG
     Route: 048
  2. ESCITALOPRAM [Suspect]
     Active Substance: ESCITALOPRAM OXALATE
     Indication: Depression
     Dosage: MAXIMUM POSSIBLE INGESTION: 140 MG
     Route: 048
  3. MORPHINE [Suspect]
     Active Substance: MORPHINE
     Indication: Depression
     Dosage: EXTENDED-RELEASE MORPHINE, MAXIMUM POSSIBLE INGESTION: 2640 MG
     Route: 048
  4. MORPHINE [Suspect]
     Active Substance: MORPHINE
     Dosage: EXTENDED-RELEASE MORPHINE, MAXIMUM POSSIBLE INGESTION: 9500 MG
     Route: 048
  5. MORPHINE [Suspect]
     Active Substance: MORPHINE
     Dosage: EXTENDED-RELEASE MORPHINE, MAXIMUM POSSIBLE INGESTION: 420 MG
     Route: 048
  6. ZOPICLONE [Suspect]
     Active Substance: ZOPICLONE
     Indication: Depression
     Dosage: MAXIMUM POSSIBLE INGESTION: 187.5 MG
     Route: 048
  7. DIAZEPAM [Suspect]
     Active Substance: DIAZEPAM
     Indication: Product used for unknown indication
     Dosage: MAXIMUM POSSIBLE INGESTION: 1800 MG
     Route: 048
  8. CITALOPRAM [Suspect]
     Active Substance: CITALOPRAM HYDROBROMIDE
     Indication: Depression
     Dosage: INGESTION
     Route: 048
  9. OXYCODONE [Suspect]
     Active Substance: OXYCODONE
     Indication: Product used for unknown indication
     Dosage: EXTENDED-RELEASE OXYCODONE, INGESTION
     Route: 048
  10. OXYCODONE [Suspect]
     Active Substance: OXYCODONE
     Dosage: EXTENDED-RELEASE OXYCODONE, INGESTION
     Route: 048
  11. ACETAMINOPHEN\OXYCODONE HYDROCHLORIDE [Suspect]
     Active Substance: ACETAMINOPHEN\OXYCODONE HYDROCHLORIDE
     Indication: Product used for unknown indication
     Dosage: ACETAMINOPHEN 325 MG AND OXYCODONE 5 MG, INGESTION
     Route: 048
  12. RAMIPRIL [Concomitant]
     Active Substance: RAMIPRIL
     Indication: Hypertension

REACTIONS (2)
  - Electrocardiogram QT prolonged [Recovering/Resolving]
  - Intentional overdose [Unknown]
